FAERS Safety Report 8923733 (Version 1)
Quarter: 2012Q4

REPORT INFORMATION
  Report Type: 
  Country: AU (occurrence: AU)
  Receive Date: 20121126
  Receipt Date: 20121126
  Transmission Date: 20130627
  Serious: Yes (Death)
  Sender: FDA-Public Use
  Company Number: AU-ROXANE LABORATORIES, INC.-2012-BI-01029GD

PATIENT
  Age: 36 Year
  Sex: Female

DRUGS (8)
  1. CODEINE [Suspect]
  2. PARACETAMOL [Suspect]
  3. DOXYLAMINE [Suspect]
  4. FLUOXETINE [Suspect]
  5. OXYCODONE [Suspect]
  6. ALPRAZOLAM [Suspect]
  7. VALPROIC ACID [Suspect]
  8. NORFLUOXETINE [Suspect]

REACTIONS (1)
  - Toxicity to various agents [Fatal]
